FAERS Safety Report 5943987-8 (Version None)
Quarter: 2008Q4

REPORT INFORMATION
  Report Type: 
  Country: None (occurrence: None)
  Receive Date: 20081106
  Receipt Date: 20081024
  Transmission Date: 20090506
  Serious: Yes (Other)
  Sender: FDA-Public Use
  Company Number: US-ELI_LILLY_AND_COMPANY-US200802004570

PATIENT
  Sex: Male
  Weight: 74.83 kg

DRUGS (6)
  1. ZYPREXA [Suspect]
     Dosage: 10 MG, UNK
     Dates: start: 19991028, end: 20010312
  2. SYMBYAX [Suspect]
     Dates: start: 19991108, end: 19991208
  3. SEROQUEL [Concomitant]
     Dates: start: 20000428, end: 20000528
  4. SEROQUEL [Concomitant]
     Dates: start: 20010330, end: 20010621
  5. RISPERDAL [Concomitant]
     Dates: start: 20001109, end: 20010910
  6. ANAFRANIL [Concomitant]
     Dates: start: 20000512, end: 20010910

REACTIONS (3)
  - DIABETES MELLITUS [None]
  - LACTIC ACIDOSIS [None]
  - METABOLIC DISORDER [None]
